FAERS Safety Report 19723107 (Version 2)
Quarter: 2021Q3

REPORT INFORMATION
  Report Type: Spontaneous
  Country: CA (occurrence: CA)
  Receive Date: 20210820
  Receipt Date: 20210929
  Transmission Date: 20211014
  Serious: Yes (Other)
  Sender: FDA-Public Use
  Company Number: CA-CELLTRION INC.-2021CA011313

PATIENT

DRUGS (6)
  1. INFLECTRA [Suspect]
     Active Substance: INFLIXIMAB-DYYB
     Dosage: 300 MG  EVERY 6 WEEKS
     Route: 042
     Dates: start: 20210628
  2. BENADRYL [Concomitant]
     Active Substance: DIPHENHYDRAMINE HYDROCHLORIDE
     Indication: PREMEDICATION
     Dosage: 50 MG
     Route: 048
     Dates: start: 20210225
  3. TYLENOL [Concomitant]
     Active Substance: ACETAMINOPHEN
     Indication: PREMEDICATION
     Dosage: 1000 MG
     Route: 048
     Dates: start: 20210225
  4. INFLECTRA [Suspect]
     Active Substance: INFLIXIMAB-DYYB
     Dosage: 300 MG  EVERY 6 WEEKS
     Route: 042
     Dates: start: 20210809
  5. INFLECTRA [Suspect]
     Active Substance: INFLIXIMAB-DYYB
     Dosage: 300 MG  EVERY 6 WEEKS
     Route: 042
     Dates: start: 20210408
  6. INFLECTRA [Suspect]
     Active Substance: INFLIXIMAB-DYYB
     Indication: CROHN^S DISEASE
     Dosage: 300 MG EVERY 6 WEEKS
     Route: 042
     Dates: start: 20210225

REACTIONS (2)
  - Gastrointestinal neoplasm [Unknown]
  - Intestinal haemorrhage [Not Recovered/Not Resolved]

NARRATIVE: CASE EVENT DATE: 2021
